FAERS Safety Report 6397574-0 (Version None)
Quarter: 2009Q4

REPORT INFORMATION
  Report Type: 
  Country: None (occurrence: None)
  Receive Date: 20091012
  Receipt Date: 20091005
  Transmission Date: 20100525
  Serious: Yes (Other)
  Sender: FDA-Public Use
  Company Number: GB-BAYER-200934853GPV

PATIENT
  Age: 73 Year
  Sex: Male

DRUGS (2)
  1. ALKA SELTZER [Suspect]
     Indication: DRUG USE FOR UNKNOWN INDICATION
     Route: 048
     Dates: start: 19790717, end: 19790724
  2. RENNIE [Concomitant]
     Indication: DRUG USE FOR UNKNOWN INDICATION
     Route: 048
     Dates: start: 19790724

REACTIONS (2)
  - MELAENA [None]
  - MYOCARDIAL INFARCTION [None]
